FAERS Safety Report 17289145 (Version 1)
Quarter: 2020Q1

REPORT INFORMATION
  Report Type: Spontaneous
  Country: PL (occurrence: PL)
  Receive Date: 20200120
  Receipt Date: 20200120
  Transmission Date: 20200409
  Serious: Yes (Death, Other)
  Sender: FDA-Public Use
  Company Number: PL-PFIZER INC-2020024041

PATIENT
  Age: 70 Year
  Sex: Female

DRUGS (1)
  1. SUTENT [Suspect]
     Active Substance: SUNITINIB MALATE
     Indication: RENAL CANCER METASTATIC
     Dosage: 50 MG, CYCLIC (ONCE DAILY, SCHEME 4 WEEKS OF TREATMENT, TWO WEEKS OF BREAK)

REACTIONS (3)
  - Neoplasm progression [Fatal]
  - Epilepsy [Unknown]
  - Embolism [Unknown]

NARRATIVE: CASE EVENT DATE: 201909
